FAERS Safety Report 8952694 (Version 2)
Quarter: 2013Q1

REPORT INFORMATION
  Report Type: Spontaneous
  Country: US (occurrence: US)
  Receive Date: 20121205
  Receipt Date: 20130102
  Transmission Date: 20140127
  Serious: No
  Sender: FDA-Public Use
  Company Number: US-009507513-1212USA000529

PATIENT
  Sex: Male
  Weight: 76.19 kg

DRUGS (6)
  1. DULERA [Suspect]
     Indication: BRONCHITIS
     Dosage: DOSE 200MCG/5MCG 2 PUFFS, BID
     Route: 055
     Dates: start: 201201, end: 201210
  2. DOXYCYCLINE [Concomitant]
  3. CITALOPRAM [Concomitant]
     Indication: DEPRESSION
  4. TOPROL XL TABLETS [Concomitant]
     Indication: HYPERTENSION
  5. OMEPRAZOLE [Concomitant]
     Indication: DYSPEPSIA
  6. NAPROXEN [Concomitant]
     Indication: OSTEOARTHRITIS
     Dosage: UNK

REACTIONS (1)
  - Alopecia totalis [Not Recovered/Not Resolved]
